FAERS Safety Report 6034002-9 (Version None)
Quarter: 2009Q1

REPORT INFORMATION
  Report Type: 
  Country: None (occurrence: None)
  Receive Date: 20090112
  Receipt Date: 20090105
  Transmission Date: 20090719
  Serious: Yes (Death)
  Sender: FDA-Public Use
  Company Number: US-CELGENEUS-163-21880-08120192

PATIENT
  Sex: Male

DRUGS (2)
  1. REVLIMID [Suspect]
     Indication: MYELODYSPLASTIC SYNDROME
     Route: 048
     Dates: start: 20080707, end: 20080901
  2. REVLIMID [Suspect]
     Route: 048
     Dates: start: 20080118, end: 20080401

REACTIONS (1)
  - LUNG NEOPLASM MALIGNANT [None]
